FAERS Safety Report 6283288-4 (Version None)
Quarter: 2009Q3

REPORT INFORMATION
  Report Type: 
  Country: None (occurrence: None)
  Receive Date: 20090724
  Receipt Date: 20090721
  Transmission Date: 20100115
  Serious: Yes (Death)
  Sender: FDA-Public Use
  Company Number: US-JNJFOC-20090707741

PATIENT
  Sex: Male
  Weight: 70.31 kg

DRUGS (2)
  1. FENTANYL-100 [Suspect]
     Indication: DRUG USE FOR UNKNOWN INDICATION
     Route: 065
  2. COCAINE [Concomitant]

REACTIONS (3)
  - BRONCHOPNEUMONIA [None]
  - NARCOTIC INTOXICATION [None]
  - PULMONARY OEDEMA [None]
